FAERS Safety Report 22623042 (Version 1)
Quarter: 2023Q2

REPORT INFORMATION
  Report Type: Report from Study
  Country: US (occurrence: US)
  Receive Date: 20230621
  Receipt Date: 20230621
  Transmission Date: 20230722
  Serious: Yes (Hospitalization)
  Sender: FDA-Public Use
  Company Number: US-ABBVIE-5296543

PATIENT
  Sex: Female

DRUGS (1)
  1. RINVOQ [Suspect]
     Active Substance: UPADACITINIB
     Indication: Colitis ulcerative
     Route: 048
     Dates: start: 20230306

REACTIONS (4)
  - Dysphagia [Recovered/Resolved]
  - Back pain [Recovering/Resolving]
  - Illness [Unknown]
  - Tonsillar disorder [Unknown]

NARRATIVE: CASE EVENT DATE: 20230101
